FAERS Safety Report 6136603-6 (Version None)
Quarter: 2009Q1

REPORT INFORMATION
  Report Type: 
  Country: None (occurrence: None)
  Receive Date: 20090330
  Receipt Date: 20090319
  Transmission Date: 20090719
  Serious: Yes (Hospitalization)
  Sender: FDA-Public Use
  Company Number: CA-JNJFOC-20090305846

PATIENT
  Weight: 60 kg

DRUGS (6)
  1. REMICADE [Suspect]
     Route: 042
  2. REMICADE [Suspect]
     Indication: CROHN'S DISEASE
     Route: 042
  3. BENADRYL [Concomitant]
     Indication: PREMEDICATION
  4. ACETAMINOPHEN [Concomitant]
     Indication: PREMEDICATION
  5. VITAMIN B-12 [Concomitant]
  6. ACTONEL [Concomitant]

REACTIONS (3)
  - CROHN'S DISEASE [None]
  - PERICARDITIS [None]
  - THERAPEUTIC RESPONSE DECREASED [None]
